FAERS Safety Report 23566792 (Version 2)
Quarter: 2024Q1

REPORT INFORMATION
  Report Type: Spontaneous
  Country: GB (occurrence: GB)
  Receive Date: 20240226
  Receipt Date: 20240312
  Transmission Date: 20240409
  Serious: Yes (Hospitalization, Disabling, Other)
  Sender: FDA-Public Use
  Company Number: GB-FERRINGPH-2024FE00791

PATIENT

DRUGS (1)
  1. DINOPROSTONE [Suspect]
     Active Substance: DINOPROSTONE
     Indication: Labour induction
     Dosage: STANDARD DOSE
     Route: 065
     Dates: start: 20130103

REACTIONS (4)
  - Cystocele [Unknown]
  - Renal pain [Unknown]
  - Impaired quality of life [Unknown]
  - Uterine hypertonus [Recovered/Resolved]

NARRATIVE: CASE EVENT DATE: 20130101
